FAERS Safety Report 21144275 (Version 1)
Quarter: 2022Q3

REPORT INFORMATION
  Report Type: Spontaneous
  Country: US (occurrence: None)
  Receive Date: 20220728
  Receipt Date: 20220728
  Transmission Date: 20221027
  Serious: Yes (Disabling)
  Sender: FDA-Public Use
  Company Number: None

PATIENT
  Age: 67 Year
  Sex: Female
  Weight: 95.25 kg

DRUGS (23)
  1. EMGALITY [Suspect]
     Active Substance: GALCANEZUMAB-GNLM
     Indication: Migraine prophylaxis
     Dosage: FREQUENCY : MONTHLY;?
     Route: 042
     Dates: start: 20220323
  2. RANEXA [Concomitant]
     Active Substance: RANOLAZINE
  3. ASA [Concomitant]
  4. METOPROLOL SUCCINATE [Concomitant]
     Active Substance: METOPROLOL SUCCINATE
  5. HYDROCHLOROTHIAZIDE [Concomitant]
     Active Substance: HYDROCHLOROTHIAZIDE
  6. LOSARTAN [Concomitant]
     Active Substance: LOSARTAN
  7. AMLODIPINE [Concomitant]
     Active Substance: AMLODIPINE BESYLATE
  8. ROSUVASTATIN [Concomitant]
     Active Substance: ROSUVASTATIN
  9. EZETIMIBE [Concomitant]
     Active Substance: EZETIMIBE
  10. LOVAZA [Concomitant]
     Active Substance: OMEGA-3-ACID ETHYL ESTERS
  11. OMEPRAZOLE [Concomitant]
     Active Substance: OMEPRAZOLE
  12. MIRTAZAPINE [Concomitant]
     Active Substance: MIRTAZAPINE
  13. ALPRAZOLAM [Concomitant]
     Active Substance: ALPRAZOLAM
  14. CLONAZEPAM [Concomitant]
     Active Substance: CLONAZEPAM
  15. NURTEC ODT [Concomitant]
     Active Substance: RIMEGEPANT SULFATE
  16. NITROGLYCERIN [Concomitant]
     Active Substance: NITROGLYCERIN
  17. VITAMIN D3 [Concomitant]
     Active Substance: CHOLECALCIFEROL
  18. VIT B2 [Concomitant]
  19. VIT K2 [Concomitant]
  20. MAGNESIUM [Concomitant]
     Active Substance: MAGNESIUM
  21. DOCUSATE [Concomitant]
     Active Substance: DOCUSATE
  22. MIRALAX [Concomitant]
     Active Substance: POLYETHYLENE GLYCOL 3350
  23. LINZESS [Concomitant]
     Active Substance: LINACLOTIDE

REACTIONS (4)
  - Constipation [None]
  - Weight increased [None]
  - Gait disturbance [None]
  - Cardiac disorder [None]

NARRATIVE: CASE EVENT DATE: 20220501
